FAERS Safety Report 8388937-2 (Version None)
Quarter: 2012Q2

REPORT INFORMATION
  Report Type: 
  Country: None (occurrence: None)
  Receive Date: 20120528
  Receipt Date: 20060908
  Transmission Date: 20120825
  Serious: No
  Sender: FDA-Public Use
  Company Number: 2006BI012783

PATIENT
  Age: 38 Year
  Sex: Female

DRUGS (3)
  1. TYSABRI [Suspect]
     Route: 042
     Dates: start: 20060908, end: 20060915
  2. AVONEX [Concomitant]
     Route: 030
     Dates: start: 20050517
  3. TYSABRI [Suspect]
     Indication: MULTIPLE SCLEROSIS
     Route: 042
     Dates: start: 20050207, end: 20050207

REACTIONS (7)
  - CHEST DISCOMFORT [None]
  - THROAT IRRITATION [None]
  - INFUSION RELATED REACTION [None]
  - PRURITUS GENERALISED [None]
  - OROPHARYNGEAL DISCOMFORT [None]
  - URTICARIA [None]
  - NAUSEA [None]
